FAERS Safety Report 8220555-9 (Version None)
Quarter: 2012Q1

REPORT INFORMATION
  Report Type: 
  Country: None (occurrence: None)
  Receive Date: 20120320
  Receipt Date: 20120314
  Transmission Date: 20120608
  Serious: Yes (Other)
  Sender: FDA-Public Use
  Company Number: US-BAYER-2012-025481

PATIENT
  Sex: Female

DRUGS (1)
  1. AVELOX [Suspect]
     Route: 048

REACTIONS (5)
  - PRURITUS [None]
  - RASH [None]
  - DYSPNOEA [None]
  - SWELLING FACE [None]
  - HYPERSENSITIVITY [None]
